FAERS Safety Report 14662535 (Version 2)
Quarter: 2018Q2

REPORT INFORMATION
  Report Type: Spontaneous
  Country: AU (occurrence: AU)
  Receive Date: 20180321
  Receipt Date: 20180411
  Transmission Date: 20180711
  Serious: Yes (Hospitalization, Other)
  Sender: FDA-Public Use
  Company Number: AU-009507513-1803AUS005260

PATIENT
  Sex: Female

DRUGS (1)
  1. NUVARING [Suspect]
     Active Substance: ETHINYL ESTRADIOL\ETONOGESTREL
     Indication: MIGRAINE PROPHYLAXIS
     Dosage: REPLACE NUVARING EVERY 4 WEEKS AND HAVE A 2 DAY BREAK EVERY 4 MONTHS
     Dates: start: 2015

REACTIONS (4)
  - Product use in unapproved indication [Unknown]
  - Pyelonephritis [Unknown]
  - Inappropriate schedule of drug administration [Unknown]
  - Vaginal discharge [Unknown]

NARRATIVE: CASE EVENT DATE: 2015
